FAERS Safety Report 25373527 (Version 1)
Quarter: 2025Q2

REPORT INFORMATION
  Report Type: Spontaneous
  Country: CN (occurrence: CN)
  Receive Date: 20250529
  Receipt Date: 20250529
  Transmission Date: 20250716
  Serious: Yes (Other)
  Sender: SANOFI AVENTIS
  Company Number: CN-SA-2025SA152322

PATIENT
  Age: 69 Year
  Sex: Male
  Weight: 79.7 kg

DRUGS (2)
  1. CLOPIDOGREL BISULFATE [Suspect]
     Active Substance: CLOPIDOGREL BISULFATE
     Indication: Myocardial infarction
     Dosage: 75 MG, QD
     Route: 048
     Dates: start: 20250517, end: 20250521
  2. HEPARIN SODIUM [Concomitant]
     Active Substance: HEPARIN SODIUM
     Indication: Myocardial infarction
     Dosage: 5000 IU, BID
     Route: 058
     Dates: start: 20250517, end: 20250521

REACTIONS (3)
  - Henoch-Schonlein purpura [Recovering/Resolving]
  - Rash macular [Recovering/Resolving]
  - Skin haemorrhage [Recovering/Resolving]

NARRATIVE: CASE EVENT DATE: 20250521
